FAERS Safety Report 7208564-X (Version None)
Quarter: 2011Q1

REPORT INFORMATION
  Report Type: 
  Country: None (occurrence: None)
  Receive Date: 20110104
  Receipt Date: 20101228
  Transmission Date: 20110831
  Serious: Yes (Hospitalization)
  Sender: FDA-Public Use
  Company Number: US-JNJFOC-20101209244

PATIENT
  Sex: Female
  Weight: 65.77 kg

DRUGS (3)
  1. LEVAQUIN [Suspect]
     Route: 048
  2. LEVAQUIN [Suspect]
     Indication: DIVERTICULITIS
     Route: 042
  3. UNKNOWN MEDICATION [Concomitant]
     Indication: PAIN
     Route: 042

REACTIONS (2)
  - MUSCULOSKELETAL STIFFNESS [None]
  - JOINT STIFFNESS [None]
